FAERS Safety Report 13424702 (Version 2)
Quarter: 2017Q2

REPORT INFORMATION
  Report Type: Spontaneous
  Country: US (occurrence: US)
  Receive Date: 20170410
  Receipt Date: 20170530
  Transmission Date: 20170830
  Serious: Yes (Hospitalization, Other)
  Sender: FDA-Public Use
  Company Number: US-BAUSCH-BL-2017-008584

PATIENT
  Sex: Male
  Weight: 68.1 kg

DRUGS (5)
  1. MICARDIS [Suspect]
     Active Substance: TELMISARTAN
     Indication: HYPERTENSION
  2. MINOCYCLINE [Suspect]
     Active Substance: MINOCYCLINE\MINOCYCLINE HYDROCHLORIDE
     Indication: PERIODONTAL DISEASE
     Dosage: GINGIVAL USE
     Route: 050
  3. HYDROCHLOROTHIAZIDE. [Suspect]
     Active Substance: HYDROCHLOROTHIAZIDE
     Indication: HYPERTENSION
  4. ZOCOR [Suspect]
     Active Substance: SIMVASTATIN
     Indication: HYPERLIPIDAEMIA
  5. ASPIRIN. [Suspect]
     Active Substance: ASPIRIN
     Indication: HYPERTENSION

REACTIONS (1)
  - Tongue abscess [Recovered/Resolved]
